FAERS Safety Report 6633381-9 (Version None)
Quarter: 2010Q1

REPORT INFORMATION
  Report Type: 
  Country: None (occurrence: None)
  Receive Date: 20100312
  Receipt Date: 20100305
  Transmission Date: 20100710
  Serious: Yes (Other)
  Sender: FDA-Public Use
  Company Number: NL-PFIZER INC-2010015497

PATIENT
  Age: 56 Year
  Sex: Male

DRUGS (4)
  1. LIPITOR [Suspect]
     Dosage: 40 MG, 1X/DAY
     Dates: start: 20090812, end: 20100204
  2. NEXIUM [Concomitant]
     Dosage: 20 UNK, 1X/DAY
  3. METOPROLOL - SLOW RELEASE [Concomitant]
     Dosage: 50 UNK, 1X/DAY
  4. ACETYLSALICYLIC ACID [Concomitant]
     Dosage: 80 UNK, 1X/DAY

REACTIONS (1)
  - PANCREATITIS CHRONIC [None]
